FAERS Safety Report 23946886 (Version 1)
Quarter: 2024Q2

REPORT INFORMATION
  Report Type: Spontaneous
  Country: PT (occurrence: PT)
  Receive Date: 20240606
  Receipt Date: 20240606
  Transmission Date: 20240716
  Serious: Yes (Other)
  Sender: FDA-Public Use
  Company Number: PT-JNJFOC-20240563995

PATIENT
  Age: 60 Year
  Sex: Male

DRUGS (3)
  1. TADALAFIL [Suspect]
     Active Substance: TADALAFIL
     Indication: Product used for unknown indication
     Dosage: UNK UNK, UNKNOWN
     Route: 065
  2. UPTRAVI [Suspect]
     Active Substance: SELEXIPAG
     Indication: Product used for unknown indication
     Dosage: UNK UNK, UNKNOWN
     Route: 048
  3. AMBRISENTAN [Concomitant]
     Active Substance: AMBRISENTAN
     Indication: Product used for unknown indication
     Dosage: UNK UNK, UNKNOWN
     Route: 065

REACTIONS (4)
  - Aortic stenosis [Unknown]
  - Angina pectoris [Recovering/Resolving]
  - Electrocardiogram abnormal [Recovering/Resolving]
  - Troponin increased [Recovering/Resolving]
